FAERS Safety Report 18585556 (Version 1)
Quarter: 2020Q4

REPORT INFORMATION
  Report Type: Other
  Country: CA (occurrence: CA)
  Receive Date: 20201207
  Receipt Date: 20201207
  Transmission Date: 20210114
  Serious: Yes (Other)
  Sender: FDA-Public Use
  Company Number: CA-COVIS PHARMA B.V.-2020COV00566

PATIENT
  Age: 41 Year
  Sex: Female

DRUGS (5)
  1. DESOXYMETHASONE [Concomitant]
     Active Substance: DESOXIMETASONE
  2. PREDNISONE. [Suspect]
     Active Substance: PREDNISONE
     Indication: PRODUCT USED FOR UNKNOWN INDICATION
     Dosage: 50 MG
  3. FLUTICASONE PROPIONATE/SALMETEROL XINAFOATE [Suspect]
     Active Substance: FLUTICASONE PROPIONATE\SALMETEROL XINAFOATE
     Indication: ASTHMA
     Dosage: 2 DF (DOSAGE FORM), 2X/DAY
  4. ALVESCO [Suspect]
     Active Substance: CICLESONIDE
     Indication: ASTHMA
     Dosage: 4 DF (DOSAGE FORM), 2X/DAY
     Route: 055
  5. NUCALA [Suspect]
     Active Substance: MEPOLIZUMAB
     Indication: PRODUCT USED FOR UNKNOWN INDICATION
     Dosage: 100 MG
     Route: 042

REACTIONS (12)
  - Dermatitis contact [Unknown]
  - Arthritis [Unknown]
  - Injection site discomfort [Unknown]
  - Pyrexia [Unknown]
  - Drug ineffective [Unknown]
  - Chest discomfort [Unknown]
  - Blood pressure increased [Unknown]
  - Disease recurrence [Unknown]
  - Pneumonia [Unknown]
  - Blood pressure diastolic increased [Unknown]
  - Malaise [Unknown]
  - Pain [Unknown]
